FAERS Safety Report 15554378 (Version 1)
Quarter: 2018Q4

REPORT INFORMATION
  Report Type: Spontaneous
  Country: BR (occurrence: BR)
  Receive Date: 20181026
  Receipt Date: 20181026
  Transmission Date: 20190205
  Serious: No
  Sender: FDA-Public Use
  Company Number: BR-ELI_LILLY_AND_COMPANY-BR201810009577

PATIENT
  Age: 74 Year
  Sex: Male
  Weight: 108 kg

DRUGS (2)
  1. TADALAFILA 5MG [Suspect]
     Active Substance: TADALAFIL
     Dosage: UNK, EACH MORNING (ONE TABLET)
     Route: 048
     Dates: start: 20180809
  2. TADALAFILA 5MG [Suspect]
     Active Substance: TADALAFIL
     Indication: ERECTILE DYSFUNCTION
     Dosage: UNK UNK, UNKNOWN (TWO TABLETS)
     Route: 048

REACTIONS (2)
  - Diplopia [Unknown]
  - Erectile dysfunction [Not Recovered/Not Resolved]

NARRATIVE: CASE EVENT DATE: 20180814
